FAERS Safety Report 4639401-5 (Version None)
Quarter: 2005Q2

REPORT INFORMATION
  Report Type: 
  Country: None (occurrence: None)
  Receive Date: 20050419
  Receipt Date: 20041111
  Transmission Date: 20051028
  Serious: Yes (Hospitalization)
  Sender: FDA-Public Use
  Company Number: DE-MERCK-0411DEU00234

PATIENT
  Age: 60 Year
  Sex: Female

DRUGS (10)
  1. VIOXX [Suspect]
     Indication: POST PROCEDURAL PAIN
     Route: 048
     Dates: start: 20000101, end: 20030122
  2. VIOXX [Suspect]
     Route: 048
     Dates: start: 20030221, end: 20041101
  3. DICLOFENAC SODIUM [Concomitant]
     Route: 048
     Dates: start: 20031101
  4. INSULIN, BIPHASIC ISOPHANE [INJECTION] [Concomitant]
     Route: 051
     Dates: start: 20020801
  5. REPAGLINIDE [Concomitant]
     Route: 065
     Dates: start: 20010101
  6. TETRAZEPAM [Concomitant]
     Route: 065
     Dates: start: 20010101
  7. METFORMIN HYDROCHLORIDE [Concomitant]
     Route: 048
     Dates: start: 20031001
  8. MAGNESIUM (UNSPECIFIED) [Concomitant]
     Route: 048
     Dates: start: 20031001
  9. TOLPERISONE HYDROCHLORIDE [Concomitant]
     Route: 065
     Dates: start: 20031001
  10. THIOCTIC ACID [Concomitant]
     Route: 048
     Dates: start: 20031001

REACTIONS (1)
  - MYOCARDIAL INFARCTION [None]
